FAERS Safety Report 6124004-6 (Version None)
Quarter: 2009Q1

REPORT INFORMATION
  Report Type: 
  Country: None (occurrence: None)
  Receive Date: 20090319
  Receipt Date: 20090311
  Transmission Date: 20090719
  Serious: Yes (Hospitalization, Other)
  Sender: FDA-Public Use
  Company Number: FR-NOVOPROD-285203

PATIENT
  Age: 85 Year
  Sex: Female

DRUGS (11)
  1. NOVORAPID [Suspect]
     Indication: TYPE 1 DIABETES MELLITUS
     Dosage: 29 IU, QD
     Route: 058
  2. LANTUS [Suspect]
     Indication: TYPE 1 DIABETES MELLITUS
     Dosage: 16 IU IN MORNING, QD
     Route: 058
  3. FOSAMAX [Concomitant]
     Dosage: 1 DF, QD
     Route: 048
  4. HYDROCORTISONE [Concomitant]
     Route: 048
  5. CACIT D3 [Concomitant]
     Route: 048
  6. METHOTREXATE [Concomitant]
     Route: 048
  7. EBIXA [Concomitant]
     Dosage: 1 DF, QD
     Route: 048
  8. SPECIAFOLDINE [Concomitant]
     Route: 048
  9. LEVOTHYROXINE SODIUM [Concomitant]
     Dosage: 100 UG, QD
     Route: 048
  10. VASTAREL [Concomitant]
     Dosage: 2 DF, QD
     Route: 048
  11. KARDEGIC                           /00002703/ [Concomitant]
     Dosage: 75 MG, QD
     Route: 048

REACTIONS (4)
  - HYPERTHERMIA [None]
  - HYPOGLYCAEMIA [None]
  - LOSS OF CONSCIOUSNESS [None]
  - VOMITING [None]
